FAERS Safety Report 10270832 (Version 1)
Quarter: 2014Q2

REPORT INFORMATION
  Report Type: Spontaneous
  Country: FR (occurrence: None)
  Receive Date: 20140626
  Receipt Date: 20140626
  Transmission Date: 20141212
  Serious: Yes (Hospitalization)
  Sender: FDA-Public Use
  Company Number: 2405221

PATIENT
  Age: 75 Year
  Sex: Female

DRUGS (11)
  1. VINCRISTINE SULFATE [Suspect]
     Indication: LYMPHOMA
     Route: 042
     Dates: start: 201007, end: 201011
  2. RITUXIMAB [Suspect]
     Indication: LYMPHOMA
     Route: 042
     Dates: start: 201007
  3. DOXORUBICINE [Suspect]
     Indication: LYMPHOMA
     Route: 042
     Dates: start: 201007
  4. CYCLOPHOSPHAMIDE [Suspect]
     Indication: LYMPHOMA
     Route: 042
     Dates: start: 201007
  5. PREDNISONE [Concomitant]
  6. TAHOR [Concomitant]
  7. ENDOXAN [Concomitant]
  8. LYSANXIA [Concomitant]
  9. SERTRALINE [Concomitant]
  10. TEMERIT [Concomitant]
  11. NOVONORM [Concomitant]

REACTIONS (3)
  - Dysarthria [None]
  - VIIth nerve paralysis [None]
  - Paraesthesia [None]
